FAERS Safety Report 21374060 (Version 17)
Quarter: 2023Q4

REPORT INFORMATION
  Report Type: Report from Study
  Country: US (occurrence: US)
  Receive Date: 20220926
  Receipt Date: 20231218
  Transmission Date: 20240109
  Serious: No
  Sender: FDA-Public Use
  Company Number: US-NOVARTISTESTPH-NVSC2022US213638

PATIENT
  Sex: Female

DRUGS (3)
  1. KESIMPTA [Suspect]
     Active Substance: OFATUMUMAB
     Indication: Product used for unknown indication
     Dosage: UNK
     Route: 065
  2. KESIMPTA [Suspect]
     Active Substance: OFATUMUMAB
     Dosage: 20 MG, QMO
     Route: 065
  3. DILAUDID [Suspect]
     Active Substance: HYDROMORPHONE HYDROCHLORIDE
     Indication: Pain
     Dosage: UNK
     Route: 065

REACTIONS (27)
  - Breakthrough pain [Unknown]
  - Pain in extremity [Unknown]
  - Limb discomfort [Unknown]
  - Musculoskeletal disorder [Unknown]
  - Vomiting [Unknown]
  - Nausea [Unknown]
  - Balance disorder [Unknown]
  - Gait disturbance [Unknown]
  - Fall [Unknown]
  - Peripheral swelling [Unknown]
  - Dizziness [Unknown]
  - Insomnia [Unknown]
  - Stress [Unknown]
  - Nasal congestion [Unknown]
  - Restlessness [Unknown]
  - Injection related reaction [Unknown]
  - Fatigue [Unknown]
  - Pain [Unknown]
  - Malaise [Unknown]
  - Mouth breathing [Unknown]
  - Rhinorrhoea [Unknown]
  - Upper-airway cough syndrome [Unknown]
  - Middle insomnia [Unknown]
  - Burning sensation [Unknown]
  - Dysphonia [Unknown]
  - Device use error [Unknown]
  - Product dose omission in error [Unknown]
